FAERS Safety Report 9726716 (Version 1)
Quarter: 2013Q4

REPORT INFORMATION
  Report Type: Spontaneous
  Country: BR (occurrence: None)
  Receive Date: 20131129
  Receipt Date: 20131129
  Transmission Date: 20140711
  Serious: Yes (Other)
  Sender: FDA-Public Use
  Company Number: SYM-2013-13313

PATIENT
  Sex: Female

DRUGS (1)
  1. WELLBUTRIN XL (BUPROPION HYDROCHLORIDE)(TABLETS)(BUPROPION HYDROCHLORIDE) [Suspect]
     Indication: PRODUCT USED FOR UNKNOWN INDICATION
     Route: 048

REACTIONS (5)
  - Urinary retention [None]
  - Myalgia [None]
  - Muscle spasms [None]
  - Tremor [None]
  - Vision blurred [None]
